FAERS Safety Report 9015549 (Version 1)
Quarter: 2013Q1

REPORT INFORMATION
  Report Type: Spontaneous
  Country: GB (occurrence: None)
  Receive Date: 20130103
  Receipt Date: 20130103
  Transmission Date: 20140127
  Serious: Yes (Other)
  Sender: FDA-Public Use
  Company Number: 2012P1068331

PATIENT
  Age: 62 Year
  Sex: Female

DRUGS (2)
  1. GENTAMICIN [Suspect]
     Indication: CATARACT OPERATION
     Route: 057
  2. MAXITROL (DEXAMETHASONE, NEOMYCIN, OLYMYXIN-B SULFATE SUSPENSION) [Concomitant]

REACTIONS (2)
  - Toxic anterior segment syndrome [None]
  - Incorrect route of drug administration [None]
